FAERS Safety Report 13160082 (Version 1)
Quarter: 2017Q1

REPORT INFORMATION
  Report Type: Spontaneous
  Country: DK (occurrence: DK)
  Receive Date: 20170127
  Receipt Date: 20170127
  Transmission Date: 20170428
  Serious: Yes (Other)
  Sender: FDA-Public Use
  Company Number: DK-ELI_LILLY_AND_COMPANY-DK201701008878

PATIENT
  Sex: Female

DRUGS (1)
  1. ZYPREXA [Suspect]
     Active Substance: OLANZAPINE
     Indication: PRODUCT USED FOR UNKNOWN INDICATION
     Dosage: UNK, UNKNOWN
     Route: 065
     Dates: start: 2002, end: 2006

REACTIONS (23)
  - Hypoaesthesia [Unknown]
  - Constipation [Unknown]
  - Tremor [Unknown]
  - Visual acuity reduced [Unknown]
  - Eye swelling [Unknown]
  - Alopecia [Unknown]
  - Gastrointestinal disorder [Unknown]
  - Overweight [Unknown]
  - Increased viscosity of upper respiratory secretion [Unknown]
  - Thinking abnormal [Unknown]
  - Gait disturbance [Unknown]
  - Tooth injury [Unknown]
  - Tooth loss [Unknown]
  - Eye infection [Unknown]
  - Menorrhagia [Unknown]
  - Speech disorder [Unknown]
  - Menstruation irregular [Unknown]
  - Arthralgia [Unknown]
  - Angina pectoris [Unknown]
  - Eye movement disorder [Unknown]
  - Onychomycosis [Unknown]
  - Urinary tract disorder [Unknown]
  - Balance disorder [Unknown]
